FAERS Safety Report 6478041-2 (Version None)
Quarter: 2009Q4

REPORT INFORMATION
  Report Type: 
  Country: None (occurrence: None)
  Receive Date: 20091203
  Receipt Date: 20091203
  Transmission Date: 20100525
  Serious: Yes (Hospitalization)
  Sender: FDA-Public Use
  Company Number: None

PATIENT
  Sex: Male
  Weight: 11.2 kg

DRUGS (8)
  1. CYTARABINE [Suspect]
     Dosage: 8 MG
  2. ELSPAR [Suspect]
     Dosage: 2 MG
  3. AMBISOME [Concomitant]
  4. ATIVAN [Concomitant]
  5. PHENERGAN HCL [Concomitant]
  6. TYLENOL (CAPLET) [Concomitant]
  7. ZOFRAN [Concomitant]
  8. MORPHINE [Concomitant]

REACTIONS (1)
  - OBLITERATIVE BRONCHIOLITIS [None]
